FAERS Safety Report 6962551-5 (Version None)
Quarter: 2010Q3

REPORT INFORMATION
  Report Type: 
  Country: None (occurrence: None)
  Receive Date: 20100902
  Receipt Date: 20100823
  Transmission Date: 20110219
  Serious: Yes (Other)
  Sender: FDA-Public Use
  Company Number: US-ABBOTT-10P-163-0665911-00

PATIENT
  Sex: Female
  Weight: 96.702 kg

DRUGS (15)
  1. HUMIRA [Suspect]
     Indication: RHEUMATOID ARTHRITIS
     Route: 058
     Dates: start: 20100807
  2. HUMIRA [Suspect]
     Indication: OSTEOARTHRITIS
     Route: 058
  3. ZOCOR [Suspect]
     Indication: BLOOD CHOLESTEROL INCREASED
     Dates: start: 20100701, end: 20100804
  4. RAMIPRIL [Suspect]
     Indication: HYPERTENSION
     Dates: start: 20100701, end: 20100804
  5. MOBIC [Concomitant]
     Indication: PRODUCT USED FOR UNKNOWN INDICATION
  6. CITALOPRAM HYDROBROMIDE [Concomitant]
     Indication: ANXIETY
     Route: 048
  7. ALPRAZOLAM [Concomitant]
     Indication: ANXIETY
     Route: 048
  8. PANTOPRAZOLE [Concomitant]
     Indication: PRODUCT USED FOR UNKNOWN INDICATION
     Route: 048
  9. AMLODIPINE [Concomitant]
     Indication: PRODUCT USED FOR UNKNOWN INDICATION
     Route: 048
  10. POTASSIUM [Concomitant]
     Indication: PRODUCT USED FOR UNKNOWN INDICATION
     Route: 048
  11. MELOXICAM [Concomitant]
     Indication: PRODUCT USED FOR UNKNOWN INDICATION
     Route: 048
  12. LEFLUNOMIDE [Concomitant]
     Indication: PRODUCT USED FOR UNKNOWN INDICATION
     Route: 048
  13. METFORMIN HCL [Concomitant]
     Indication: DIABETES MELLITUS
     Route: 048
  14. ONGLYZA [Concomitant]
     Indication: DIABETES MELLITUS
  15. TYLENOL W/ CODEINE NO. 3 [Concomitant]
     Indication: PAIN
     Dosage: UP TO EVERY FOUR HOURS DAILY PRN
     Route: 048

REACTIONS (15)
  - CHAPPED LIPS [None]
  - DENTAL CARIES [None]
  - DRUG DOSE OMISSION [None]
  - HYPOAESTHESIA [None]
  - JOINT SWELLING [None]
  - LIP DRY [None]
  - LIP PAIN [None]
  - LIP SWELLING [None]
  - LOOSE TOOTH [None]
  - NASAL CONGESTION [None]
  - OEDEMA PERIPHERAL [None]
  - PHARYNGEAL OEDEMA [None]
  - PRURITUS [None]
  - SENSATION OF FOREIGN BODY [None]
  - SWOLLEN TONGUE [None]
